FAERS Safety Report 16968427 (Version 4)
Quarter: 2024Q3

REPORT INFORMATION
  Report Type: Spontaneous
  Country: FR (occurrence: FR)
  Receive Date: 20191029
  Receipt Date: 20240925
  Transmission Date: 20241016
  Serious: Yes (Hospitalization, Other)
  Sender: AUROBINDO
  Company Number: None

PATIENT
  Age: 3 Decade
  Sex: Female
  Weight: 56 kg

DRUGS (19)
  1. CINACALCET [Suspect]
     Active Substance: CINACALCET
     Indication: Hyperparathyroidism secondary
     Dosage: 30 MILLIGRAM, ONCE A DAY
     Route: 065
     Dates: start: 20060307
  2. CINACALCET [Suspect]
     Active Substance: CINACALCET
     Dosage: 60 MILLIGRAM, ONCE A DAY
     Route: 065
     Dates: start: 20060610
  3. CINACALCET [Suspect]
     Active Substance: CINACALCET
     Dosage: 90 MILLIGRAM, ONCE A DAY
     Dates: start: 20060915
  4. CINACALCET [Suspect]
     Active Substance: CINACALCET
     Dosage: 120 MILLIGRAM, ONCE A DAY
     Route: 065
     Dates: start: 20061206
  5. CINACALCET [Suspect]
     Active Substance: CINACALCET
     Dosage: 150 MILLIGRAM, ONCE A DAY
     Route: 065
     Dates: start: 20070524
  6. CINACALCET [Suspect]
     Active Substance: CINACALCET
     Dosage: 150 MILLIGRAM, ONCE A DAY
     Route: 065
     Dates: start: 2007, end: 200705
  7. ALFACALCIDOL [Concomitant]
     Active Substance: ALFACALCIDOL
     Indication: Hyperparathyroidism secondary
     Dosage: 4 MICROGRAM, ONCE A DAY
  8. ALFACALCIDOL [Concomitant]
     Active Substance: ALFACALCIDOL
     Dosage: 1 MICROGRAM, ONCE A DAY
     Route: 065
  9. ALFACALCIDOL [Concomitant]
     Active Substance: ALFACALCIDOL
     Dosage: 2 MICROGRAM, ONCE A DAY
     Route: 065
  10. ALFACALCIDOL [Concomitant]
     Active Substance: ALFACALCIDOL
     Dosage: 6 MICROGRAM, ONCE A DAY
     Route: 065
  11. SEVELAMER [Concomitant]
     Active Substance: SEVELAMER
     Indication: Hyperparathyroidism secondary
     Dosage: 2400 MILLIGRAM, ONCE A DAY
     Route: 065
  12. SEVELAMER [Concomitant]
     Active Substance: SEVELAMER
     Dosage: 4800 MILLIGRAM, ONCE A DAY
     Route: 065
  13. SEVELAMER [Concomitant]
     Active Substance: SEVELAMER
     Dosage: 3200 MILLIGRAM, ONCE A DAY
     Route: 065
  14. SEVELAMER [Concomitant]
     Active Substance: SEVELAMER
     Dosage: 7200 MILLIGRAM, ONCE A DAY
     Route: 065
  15. CALCIUM CARBONATE [Concomitant]
     Active Substance: CALCIUM CARBONATE
     Indication: Hyperparathyroidism secondary
     Dosage: 1.5 GRAM, ONCE A DAY
     Route: 065
  16. CALCIUM CARBONATE [Concomitant]
     Active Substance: CALCIUM CARBONATE
     Dosage: 12 GRAM, ONCE A DAY
     Route: 042
  17. CALCIUM CARBONATE [Concomitant]
     Active Substance: CALCIUM CARBONATE
     Dosage: 4.5 GRAM, ONCE A DAY
     Route: 065
  18. CALCIUM CARBONATE [Concomitant]
     Active Substance: CALCIUM CARBONATE
     Dosage: 2 GRAM, ONCE A DAY
     Route: 065
  19. VITAMIN D [Concomitant]
     Active Substance: VITAMIN D NOS
     Indication: Product used for unknown indication
     Dosage: UNK
     Route: 065

REACTIONS (6)
  - Blood parathyroid hormone increased [Recovered/Resolved]
  - Paradoxical drug reaction [Recovered/Resolved]
  - Oncocytoma [Recovered/Resolved]
  - Maternal exposure during pregnancy [Unknown]
  - Renal transplant [Unknown]
  - Drug ineffective [Unknown]

NARRATIVE: CASE EVENT DATE: 20080101
